FAERS Safety Report 5127433-2 (Version None)
Quarter: 2006Q4

REPORT INFORMATION
  Report Type: 
  Country: None (occurrence: None)
  Receive Date: 20061010
  Receipt Date: 20060925
  Transmission Date: 20070319
  Serious: Yes (Other)
  Sender: FDA-Public Use
  Company Number: 2006115772

PATIENT
  Age: 30 Year
  Sex: Male

DRUGS (2)
  1. DOXYCYCLINE [Suspect]
     Indication: MALARIA PROPHYLAXIS
     Dosage: SINGLE DOSE (100 MG), ORAL
     Route: 048
     Dates: start: 20060827, end: 20060827
  2. HERBAL PREPARATION INGREDIENTS UNKNOWN (HERBAL PREPARATION INGREDIANTS [Concomitant]

REACTIONS (1)
  - SWOLLEN TONGUE [None]
